FAERS Safety Report 10038298 (Version 1)
Quarter: 2014Q1

REPORT INFORMATION
  Report Type: Spontaneous
  Country: US (occurrence: None)
  Receive Date: 20140306
  Receipt Date: 20140306
  Transmission Date: 20141002
  Serious: Yes (Other)
  Sender: FDA-Public Use
  Company Number: 163-21880-13105769

PATIENT
  Age: 71 Year
  Sex: Female
  Weight: 55.34 kg

DRUGS (4)
  1. REVLIMID [Suspect]
     Indication: PLASMA CELL MYELOMA
     Dosage: 25 MG, 21 IN 21 D, PO 08/12/2013 - UNKNOWN THERAPY DATES
     Route: 048
     Dates: start: 20130812
  2. REVLIMID [Suspect]
     Indication: MYELODYSPLASTIC SYNDROME
     Dosage: 25 MG, 21 IN 21 D, PO 08/12/2013 - UNKNOWN THERAPY DATES
     Route: 048
     Dates: start: 20130812
  3. REVLIMID [Suspect]
     Indication: VON WILLEBRAND^S DISEASE
     Dosage: 25 MG, 21 IN 21 D, PO 08/12/2013 - UNKNOWN THERAPY DATES
     Route: 048
     Dates: start: 20130812
  4. DEXAMETHASONE (DEXAMETHASONE) [Concomitant]

REACTIONS (9)
  - Mycobacterium avium complex infection [None]
  - Skin exfoliation [None]
  - Band neutrophil count increased [None]
  - Vomiting projectile [None]
  - Night sweats [None]
  - Muscle spasms [None]
  - White blood cell count decreased [None]
  - Constipation [None]
  - Rash [None]
